FAERS Safety Report 8799078 (Version 2)
Quarter: 2012Q4

REPORT INFORMATION
  Report Type: 
  Country: US (occurrence: US)
  Receive Date: 20120920
  Receipt Date: 20121222
  Transmission Date: 20130627
  Serious: Yes (Other)
  Sender: FDA-Public Use
  Company Number: US-ASTRAZENECA-2011SE60353

PATIENT
  Age: 49 Year
  Sex: Female

DRUGS (17)
  1. LISINOPRIL [Suspect]
     Route: 048
  2. CRESTOR [Suspect]
     Route: 048
  3. CRESTOR [Suspect]
     Route: 048
  4. ATACAND [Concomitant]
     Route: 048
  5. SIMVASTATIN [Concomitant]
     Route: 048
  6. TYLENOL [Concomitant]
     Route: 048
  7. CIPRO [Concomitant]
     Route: 048
  8. ERGOCALCIFEROL [Concomitant]
     Dosage: 50000 UNITS ONCE A WEEK
     Route: 048
  9. CYMBALTA [Concomitant]
     Route: 048
  10. ULORIC [Concomitant]
     Route: 048
  11. PLAQUENIL SULFATE [Concomitant]
     Route: 048
  12. LYRICA [Concomitant]
     Route: 048
  13. MAXZIDE [Concomitant]
     Dosage: 50-75 MG 1/2 TABLET ONCE A DAY
     Route: 048
  14. VICODIN [Concomitant]
     Indication: PAIN
     Dosage: 500-5 MG BID PRN
     Route: 048
  15. DEPO-MEDROL [Concomitant]
     Dosage: 80 MG
     Route: 030
     Dates: start: 20100806
  16. BENADRYL [Concomitant]
     Dosage: 50 MG
     Route: 030
     Dates: start: 20100806
  17. FLULAVAL [Concomitant]
     Dosage: 0.5 ML
     Dates: start: 20101022

REACTIONS (3)
  - Angioedema [Unknown]
  - Drug hypersensitivity [Unknown]
  - Intercepted drug dispensing error [Unknown]
